FAERS Safety Report 7119833-6 (Version None)
Quarter: 2010Q4

REPORT INFORMATION
  Report Type: 
  Country: None (occurrence: None)
  Receive Date: 20101123
  Receipt Date: 20100902
  Transmission Date: 20110411
  Serious: No
  Sender: FDA-Public Use
  Company Number: US-BRISTOL-MYERS SQUIBB COMPANY-15270481

PATIENT
  Age: 85 Year
  Sex: Male

DRUGS (3)
  1. ONGLYZA [Suspect]
  2. ACTOS [Concomitant]
  3. GLYBURIDE [Concomitant]

REACTIONS (2)
  - DIZZINESS [None]
  - HYPERHIDROSIS [None]
